FAERS Safety Report 10697532 (Version 2)
Quarter: 2015Q1

REPORT INFORMATION
  Report Type: Spontaneous
  Country: US (occurrence: US)
  Receive Date: 20150108
  Receipt Date: 20150108
  Transmission Date: 20150721
  Serious: Yes (Hospitalization)
  Sender: FDA-Public Use
  Company Number: US-009507513-1111USA01734

PATIENT
  Sex: Male
  Weight: 70.75 kg

DRUGS (1)
  1. PROPECIA [Suspect]
     Active Substance: FINASTERIDE
     Indication: ALOPECIA
     Dosage: 1 MG, QD
     Route: 048
     Dates: start: 20080618, end: 20090424

REACTIONS (13)
  - Palpitations [Unknown]
  - Libido decreased [Unknown]
  - Temperature intolerance [Unknown]
  - Ejaculation disorder [Unknown]
  - Paraesthesia [Unknown]
  - Erectile dysfunction [Unknown]
  - Anxiety disorder [Unknown]
  - Pain in extremity [Unknown]
  - Alopecia [Unknown]
  - Ejaculation failure [Unknown]
  - Depression [Unknown]
  - Cognitive disorder [Unknown]
  - Sexual dysfunction [Unknown]

NARRATIVE: CASE EVENT DATE: 200808
